FAERS Safety Report 18431962 (Version 2)
Quarter: 2020Q4

REPORT INFORMATION
  Report Type: Spontaneous
  Country: PL (occurrence: PL)
  Receive Date: 20201027
  Receipt Date: 20201113
  Transmission Date: 20210114
  Serious: Yes (Death, Hospitalization, Other)
  Sender: FDA-Public Use
  Company Number: PL-JNJFOC-20201038148

PATIENT
  Age: 49 Year
  Sex: Female

DRUGS (11)
  1. PANTOPRAZOLE [Concomitant]
     Active Substance: PANTOPRAZOLE
  2. ASPRIN [Concomitant]
     Active Substance: ASPIRIN
  3. TRANDOLAPRIL. [Concomitant]
     Active Substance: TRANDOLAPRIL
  4. BOSENTAN. [Suspect]
     Active Substance: BOSENTAN
     Indication: PULMONARY ARTERIAL HYPERTENSION
     Route: 048
  5. VENTAVIS [Suspect]
     Active Substance: ILOPROST
     Indication: PULMONARY ARTERIAL HYPERTENSION
     Route: 055
  6. RIOCIGUAT. [Concomitant]
     Active Substance: RIOCIGUAT
     Indication: PULMONARY ARTERIAL HYPERTENSION
     Dates: start: 201901
  7. NEBIVOLOL. [Concomitant]
     Active Substance: NEBIVOLOL
  8. PROPAFENONE. [Concomitant]
     Active Substance: PROPAFENONE
  9. OPSUMIT [Suspect]
     Active Substance: MACITENTAN
     Indication: PULMONARY ARTERIAL HYPERTENSION
     Route: 048
  10. ATORVASTATIN [Concomitant]
     Active Substance: ATORVASTATIN
  11. SILDENAFIL. [Suspect]
     Active Substance: SILDENAFIL
     Indication: PULMONARY ARTERIAL HYPERTENSION
     Route: 048

REACTIONS (12)
  - Cardiopulmonary failure [Unknown]
  - Drug ineffective [Unknown]
  - Pneumonia [Unknown]
  - Atrial fibrillation [Unknown]
  - Hypertransaminasaemia [Unknown]
  - Fluid retention [Unknown]
  - Dermatitis allergic [Unknown]
  - Septic shock [Fatal]
  - Dyspnoea at rest [Unknown]
  - Cardiogenic shock [Unknown]
  - Acute kidney injury [Unknown]
  - Hyperbilirubinaemia [Unknown]

NARRATIVE: CASE EVENT DATE: 201811
